FAERS Safety Report 17294158 (Version 1)
Quarter: 2020Q1

REPORT INFORMATION
  Report Type: Spontaneous
  Country: US (occurrence: US)
  Receive Date: 20200121
  Receipt Date: 20200121
  Transmission Date: 20200409
  Serious: No
  Sender: FDA-Public Use
  Company Number: US-009507513-2001USA006825

PATIENT
  Age: 41 Year
  Sex: Female

DRUGS (8)
  1. LEUPROLIDE [Concomitant]
     Active Substance: LEUPROLIDE
  2. AZITHROMYCIN ANHYDROUS. [Concomitant]
     Active Substance: AZITHROMYCIN ANHYDROUS
  3. GANIRELIX ACETATE. [Concomitant]
     Active Substance: GANIRELIX ACETATE
  4. FOLLISTIM [Suspect]
     Active Substance: FOLLITROPIN
     Indication: INFERTILITY FEMALE
     Dosage: 225 INTERNATIONAL UNIT, QD. STRENGHT: 900IU/1.08ML
     Route: 058
     Dates: start: 20181204
  5. FOLLISTIM [Suspect]
     Active Substance: FOLLITROPIN
  6. DEXAMETHASONE. [Concomitant]
     Active Substance: DEXAMETHASONE
  7. MENOPUR [Concomitant]
     Active Substance: FOLLITROPIN\LUTEINIZING HORMONE
  8. LEUPROLIDE [Suspect]
     Active Substance: LEUPROLIDE

REACTIONS (1)
  - Abdominal pain upper [Unknown]

NARRATIVE: CASE EVENT DATE: 20200115
